FAERS Safety Report 10243436 (Version 1)
Quarter: 2014Q2

REPORT INFORMATION
  Report Type: Spontaneous
  Country: IT (occurrence: IT)
  Receive Date: 20140618
  Receipt Date: 20140618
  Transmission Date: 20141212
  Serious: Yes (Other)
  Sender: FDA-Public Use
  Company Number: IT-MYLANLABS-2014S1013671

PATIENT
  Age: 93 Year
  Sex: 0

DRUGS (6)
  1. REPAGLINIDE [Suspect]
     Indication: DIABETES MELLITUS
     Dosage: 1 MG DAILY
     Route: 048
     Dates: start: 20130101, end: 20140109
  2. METFORMIN [Suspect]
     Indication: DIABETES MELLITUS
     Dosage: 1000 MG DAILY
     Route: 048
     Dates: start: 20140101, end: 20140109
  3. LASIX [Concomitant]
     Indication: PRODUCT USED FOR UNKNOWN INDICATION
     Dosage: TABLET
     Route: 048
  4. OMEPRAZEN /00661201/ [Concomitant]
     Indication: PRODUCT USED FOR UNKNOWN INDICATION
     Dosage: CAPSULE
     Route: 048
  5. EUTIROX [Concomitant]
     Indication: PRODUCT USED FOR UNKNOWN INDICATION
     Route: 048
  6. ALLOPURINOL [Concomitant]
     Indication: PRODUCT USED FOR UNKNOWN INDICATION
     Dosage: TABLET
     Route: 048

REACTIONS (2)
  - Coma [Recovering/Resolving]
  - Hypoglycaemia [Recovering/Resolving]
